FAERS Safety Report 20813933 (Version 1)
Quarter: 2022Q2

REPORT INFORMATION
  Report Type: Spontaneous
  Country: US (occurrence: US)
  Receive Date: 20220511
  Receipt Date: 20220511
  Transmission Date: 20220721
  Serious: Yes (Hospitalization)
  Sender: FDA-Public Use
  Company Number: US-BRISTOL-MYERS SQUIBB COMPANY-2022-031098

PATIENT
  Age: 67 Year
  Sex: Female
  Weight: 51.255 kg

DRUGS (1)
  1. THALOMID [Suspect]
     Active Substance: THALIDOMIDE
     Indication: Plasma cell myeloma
     Dosage: ONCE DAILY AT BED TIME
     Route: 048
     Dates: start: 20220407

REACTIONS (1)
  - Hospitalisation [Unknown]
